FAERS Safety Report 7409572-6 (Version None)
Quarter: 2011Q2

REPORT INFORMATION
  Report Type: 
  Country: None (occurrence: None)
  Receive Date: 20110412
  Receipt Date: 20110329
  Transmission Date: 20111010
  Serious: Yes (Other)
  Sender: FDA-Public Use
  Company Number: CA-JNJFOC-20110312846

PATIENT
  Sex: Female
  Weight: 53.9 kg

DRUGS (14)
  1. REMICADE [Suspect]
     Indication: COLITIS ULCERATIVE
     Route: 042
  2. PENTASA [Concomitant]
     Route: 065
  3. CALCIUM [Concomitant]
     Route: 065
  4. FELODIPINE [Concomitant]
     Route: 065
  5. VITAMIN TAB [Concomitant]
     Route: 065
  6. REMICADE [Suspect]
     Route: 042
  7. ZINC [Concomitant]
     Route: 065
  8. LORATADINE [Concomitant]
     Route: 065
  9. AVAPRO [Concomitant]
     Route: 065
  10. IRON [Concomitant]
     Route: 065
  11. ATORVASTATIN [Concomitant]
     Route: 065
  12. LIPITOR [Concomitant]
     Route: 065
  13. VITAMIN D [Concomitant]
     Route: 065
  14. MAGNESIUM [Concomitant]
     Route: 065

REACTIONS (6)
  - URTICARIA [None]
  - ASTHENIA [None]
  - DIARRHOEA [None]
  - GASTROINTESTINAL HAEMORRHAGE [None]
  - CONSTIPATION [None]
  - HEADACHE [None]
